FAERS Safety Report 8341801-7 (Version None)
Quarter: 2012Q2

REPORT INFORMATION
  Report Type: 
  Country: None (occurrence: None)
  Receive Date: 20120507
  Receipt Date: 20120423
  Transmission Date: 20120825
  Serious: Yes (Hospitalization, Other)
  Sender: FDA-Public Use
  Company Number: US-ACTELION-A-NJ2009-27945

PATIENT

DRUGS (4)
  1. REMODULIN [Concomitant]
  2. TRACLEER [Suspect]
     Route: 048
     Dates: start: 20090623
  3. TRACLEER [Suspect]
     Indication: PULMONARY ARTERIAL HYPERTENSION
     Dosage: 125 MG, BID
     Route: 048
     Dates: start: 20060308, end: 20090101
  4. SILDENAFIL [Concomitant]
     Indication: PULMONARY ARTERIAL HYPERTENSION

REACTIONS (6)
  - LIVE BIRTH [None]
  - PREGNANCY [None]
  - PULMONARY ARTERIAL HYPERTENSION [None]
  - DISEASE PROGRESSION [None]
  - CAESAREAN SECTION [None]
  - HEADACHE [None]
